FAERS Safety Report 14873495 (Version 2)
Quarter: 2018Q4

REPORT INFORMATION
  Report Type: Spontaneous
  Country: FR (occurrence: FR)
  Receive Date: 20180510
  Receipt Date: 20181024
  Transmission Date: 20190204
  Serious: Yes (Other)
  Sender: FDA-Public Use
  Company Number: FR-MERCK KGAA-2047520

PATIENT
  Age: 55 Year
  Sex: Female
  Weight: 83 kg

DRUGS (3)
  1. NOVOTHYROX [Suspect]
     Active Substance: LEVOTHYROXINE SODIUM
     Dates: start: 201706, end: 201711
  2. EUTHYROX [Suspect]
     Active Substance: LEVOTHYROXINE SODIUM
     Indication: HYPOTHYROIDISM
  3. NOVOTHYROX [Suspect]
     Active Substance: LEVOTHYROXINE SODIUM
     Route: 048
     Dates: start: 201704

REACTIONS (34)
  - Nasopharyngitis [Recovering/Resolving]
  - Decreased interest [Recovering/Resolving]
  - Blood thyroid stimulating hormone abnormal [Recovering/Resolving]
  - Abdominal pain [Recovering/Resolving]
  - Arthralgia [Recovering/Resolving]
  - Drug intolerance [Recovering/Resolving]
  - C-reactive protein increased [Recovering/Resolving]
  - Heart rate increased [Recovering/Resolving]
  - Asthenia [Recovering/Resolving]
  - Myalgia [Recovering/Resolving]
  - Tension [Recovering/Resolving]
  - Cyanosis [Recovering/Resolving]
  - Ill-defined disorder [Recovering/Resolving]
  - Insomnia [Recovering/Resolving]
  - Hyperthyroidism [Recovering/Resolving]
  - Dizziness [Recovering/Resolving]
  - Dyspnoea [Recovering/Resolving]
  - Depressed mood [Recovering/Resolving]
  - Blood thyroid stimulating hormone decreased [Recovered/Resolved]
  - Urinary tract infection [Recovering/Resolving]
  - Affect lability [Recovering/Resolving]
  - Diarrhoea [Recovering/Resolving]
  - Tachycardia [Recovering/Resolving]
  - Disturbance in attention [Recovering/Resolving]
  - Sleep disorder [Recovering/Resolving]
  - Gastrointestinal disorder [Recovering/Resolving]
  - Dry eye [Recovering/Resolving]
  - Social avoidant behaviour [Recovering/Resolving]
  - Gait disturbance [Recovering/Resolving]
  - Impaired driving ability [Recovering/Resolving]
  - Mental impairment [Recovering/Resolving]
  - Fatigue [Recovering/Resolving]
  - Anxiety [Recovering/Resolving]
  - Thyroid disorder [Recovering/Resolving]

NARRATIVE: CASE EVENT DATE: 201706
